FAERS Safety Report 4816978-8 (Version None)
Quarter: 2005Q4

REPORT INFORMATION
  Report Type: 
  Country: None (occurrence: None)
  Receive Date: 20051031
  Receipt Date: 20051031
  Transmission Date: 20060501
  Serious: Yes (Hospitalization)
  Sender: FDA-Public Use
  Company Number: None

PATIENT
  Age: 73 Year
  Sex: Male

DRUGS (9)
  1. GLYBURIDE [Suspect]
     Indication: DIABETES MELLITUS NON-INSULIN-DEPENDENT
     Dosage: 10 MG BID
     Dates: start: 19960101
  2. ROSIGLITAZONE [Suspect]
     Indication: DIABETES MELLITUS NON-INSULIN-DEPENDENT
     Dosage: 2MG BID
     Dates: start: 20050501
  3. COMBIVENT [Concomitant]
  4. FUROSEMIDE [Concomitant]
  5. IBUPROFEN [Concomitant]
  6. OXYBUTYNIN [Concomitant]
  7. CARVEDILOL [Concomitant]
  8. TERAZOSIN [Concomitant]
  9. FOSINOPRIL [Concomitant]

REACTIONS (1)
  - HYPOGLYCAEMIA [None]
